FAERS Safety Report 14472446 (Version 1)
Quarter: 2018Q1

REPORT INFORMATION
  Report Type: Spontaneous
  Country: US (occurrence: US)
  Receive Date: 20180201
  Receipt Date: 20180201
  Transmission Date: 20180509
  Serious: No
  Sender: FDA-Public Use
  Company Number: US-009507513-1801USA009993

PATIENT
  Age: 49 Year
  Sex: Female

DRUGS (3)
  1. METHOTREXATE. [Concomitant]
     Active Substance: METHOTREXATE
     Indication: MULTICENTRIC RETICULOHISTIOCYTOSIS
     Dosage: UNK
     Route: 048
  2. PREDNISONE. [Concomitant]
     Active Substance: PREDNISONE
     Indication: MULTICENTRIC RETICULOHISTIOCYTOSIS
     Dosage: 2.5 MG/D
     Route: 048
  3. FOSAMAX [Suspect]
     Active Substance: ALENDRONATE SODIUM
     Indication: MULTICENTRIC RETICULOHISTIOCYTOSIS
     Dosage: 70 MG, WEEKLY
     Route: 048

REACTIONS (1)
  - Product use in unapproved indication [Unknown]
